FAERS Safety Report 13199178 (Version 1)
Quarter: 2017Q1

REPORT INFORMATION
  Report Type: Report from Study
  Country: CA (occurrence: CA)
  Receive Date: 20170208
  Receipt Date: 20170208
  Transmission Date: 20170428
  Serious: Yes (Other)
  Sender: FDA-Public Use
  Company Number: CA-KADMON PHARMACEUTICALS, LLC-KAD201701-000159

PATIENT
  Age: 66 Year
  Sex: Female

DRUGS (7)
  1. TRAZODONE [Concomitant]
     Active Substance: TRAZODONE HYDROCHLORIDE
  2. DEXILANT [Concomitant]
     Active Substance: DEXLANSOPRAZOLE
  3. HOLKIRA PAK [Suspect]
     Active Substance: DASABUVIR\OMBITASVIR\PARITAPREVIR\RITONAVIR
     Indication: CHRONIC HEPATITIS C
     Dosage: 2 X 12.5/75/50 MG TABLETS QD AND 1 X 250 MG TABLET BID
     Route: 048
     Dates: start: 20161117, end: 20170202
  4. ASPIRIN. [Concomitant]
     Active Substance: ASPIRIN
  5. COVERSYL [Concomitant]
     Active Substance: PERINDOPRIL
  6. RIBAVIRIN. [Suspect]
     Active Substance: RIBAVIRIN
     Dosage: TABLET
     Route: 048
     Dates: end: 20170202
  7. RIBAVIRIN. [Suspect]
     Active Substance: RIBAVIRIN
     Indication: CHRONIC HEPATITIS C
     Dosage: TABLET
     Route: 048
     Dates: start: 20161117

REACTIONS (8)
  - Cystitis [Not Recovered/Not Resolved]
  - Hypoaesthesia [Not Recovered/Not Resolved]
  - Cardiac failure congestive [Not Recovered/Not Resolved]
  - Pulmonary embolism [Unknown]
  - Cough [Not Recovered/Not Resolved]
  - Hyponatraemia [Not Recovered/Not Resolved]
  - Lower respiratory tract infection [Not Recovered/Not Resolved]
  - Paraesthesia [Not Recovered/Not Resolved]

NARRATIVE: CASE EVENT DATE: 20170105
